FAERS Safety Report 15650995 (Version 1)
Quarter: 2018Q4

REPORT INFORMATION
  Report Type: Spontaneous
  Country: US (occurrence: US)
  Receive Date: 20181123
  Receipt Date: 20181123
  Transmission Date: 20190205
  Serious: Yes (Hospitalization, Other)
  Sender: FDA-Public Use
  Company Number: US-AUROBINDO-AUR-APL-2018-055652

PATIENT
  Age: 27 Year
  Sex: Female

DRUGS (1)
  1. ACETAMINOPHEN. [Suspect]
     Active Substance: ACETAMINOPHEN
     Indication: TOOTHACHE
     Dosage: TAKEN A FULL BOTTLE (BOTTLE SIZE UNKNOWN) OF ACETAMINOPHEN, UNK
     Route: 048

REACTIONS (5)
  - Hepatotoxicity [Recovering/Resolving]
  - Drug level increased [Recovering/Resolving]
  - Coagulation test abnormal [Recovering/Resolving]
  - Overdose [Recovering/Resolving]
  - Exposure during pregnancy [Recovering/Resolving]
